FAERS Safety Report 25479057 (Version 1)
Quarter: 2025Q2

REPORT INFORMATION
  Report Type: Report from Study
  Country: TR (occurrence: TR)
  Receive Date: 20250625
  Receipt Date: 20250625
  Transmission Date: 20250716
  Serious: Yes (Hospitalization)
  Sender: ABBVIE
  Company Number: TR-ABBVIE-6339721

PATIENT
  Sex: Female

DRUGS (6)
  1. CARBIDOPA\LEVODOPA [Suspect]
     Active Substance: CARBIDOPA\LEVODOPA
     Indication: Parkinson^s disease
     Route: 050
     Dates: start: 20170323, end: 20250619
  2. CARBIDOPA\LEVODOPA [Suspect]
     Active Substance: CARBIDOPA\LEVODOPA
  3. CARBIDOPA\ENTACAPONE\LEVODOPA [Concomitant]
     Active Substance: CARBIDOPA\ENTACAPONE\LEVODOPA
     Indication: Parkinson^s disease
     Route: 048
     Dates: start: 201910
  4. CLOZAPINE [Concomitant]
     Active Substance: CLOZAPINE
     Indication: Depression
     Dosage: 200 MILLIGRAM
     Route: 048
     Dates: start: 2015
  5. BENSERAZIDE HYDROCHLORIDE\LEVODOPA [Concomitant]
     Active Substance: BENSERAZIDE HYDROCHLORIDE\LEVODOPA
     Indication: Parkinson^s disease
     Route: 048
     Dates: start: 201910
  6. AMANTADINE SULFATE [Concomitant]
     Active Substance: AMANTADINE SULFATE
     Indication: Parkinson^s disease
     Dosage: 100 MILLIGRAM
     Route: 048
     Dates: start: 2015

REACTIONS (2)
  - General physical health deterioration [Not Recovered/Not Resolved]
  - Stoma site induration [Not Recovered/Not Resolved]
